FAERS Safety Report 17315760 (Version 4)
Quarter: 2020Q4

REPORT INFORMATION
  Report Type: Spontaneous
  Country: US (occurrence: US)
  Receive Date: 20200124
  Receipt Date: 20201214
  Transmission Date: 20210113
  Serious: Yes (Hospitalization)
  Sender: FDA-Public Use
  Company Number: US-SA-2019SA113090

PATIENT

DRUGS (10)
  1. EPINEPHRINE. [Concomitant]
     Active Substance: EPINEPHRINE
  2. CEREZYME [Suspect]
     Active Substance: IMIGLUCERASE
     Indication: GAUCHER^S DISEASE
     Dosage: 4000 U, QOW
     Route: 041
     Dates: start: 20180123
  3. CEREZYME [Suspect]
     Active Substance: IMIGLUCERASE
     Indication: FABRY^S DISEASE
     Dosage: 4000 U, QOW
     Route: 042
     Dates: start: 20200305
  4. ATORVASTATIN [Concomitant]
     Active Substance: ATORVASTATIN
  5. FISH OIL [Concomitant]
     Active Substance: FISH OIL
  6. STERILE WATER [Concomitant]
     Active Substance: WATER
  7. CEREZYME [Suspect]
     Active Substance: IMIGLUCERASE
     Indication: LIPIDOSIS
     Dosage: 4000 IU, QOW
     Route: 041
     Dates: start: 201903
  8. NORMAL SALINE [Concomitant]
     Active Substance: SODIUM CHLORIDE
  9. VITAMIN D2 [Concomitant]
     Active Substance: ERGOCALCIFEROL
  10. METAMUCIL [Concomitant]
     Active Substance: PLANTAGO SEED

REACTIONS (6)
  - Procedural pain [Unknown]
  - Intestinal resection [Unknown]
  - Product dose omission issue [Unknown]
  - Product use in unapproved indication [Unknown]
  - Gastrointestinal disorder [Unknown]
  - Surgery [Unknown]

NARRATIVE: CASE EVENT DATE: 20180123
